FAERS Safety Report 4988337-9 (Version None)
Quarter: 2006Q2

REPORT INFORMATION
  Report Type: 
  Country: None (occurrence: None)
  Receive Date: 20060502
  Receipt Date: 20060314
  Transmission Date: 20061013
  Serious: Yes (Life-Threatening, Hospitalization)
  Sender: FDA-Public Use
  Company Number: CA-BOEHRINGER INGELHEIM PHARMACEUTICALS, INC.-2006-CN-00152CN

PATIENT
  Sex: Male
  Weight: 74.5 kg

DRUGS (3)
  1. TIPRANAVIR + RITONAVIR CO-ADMIN [Suspect]
     Indication: ACQUIRED IMMUNODEFICIENCY SYNDROME
     Dosage: 1000 MG TPV / 400 MG RTV
     Route: 048
     Dates: start: 20050224
  2. FUZEON [Suspect]
     Indication: ACQUIRED IMMUNODEFICIENCY SYNDROME
     Route: 058
     Dates: start: 20050224
  3. COUMADIN [Concomitant]
     Indication: DEEP VEIN THROMBOSIS
     Route: 048

REACTIONS (3)
  - ABDOMINAL PAIN [None]
  - APPENDICITIS PERFORATED [None]
  - PERITONITIS [None]
